FAERS Safety Report 24803316 (Version 1)
Quarter: 2025Q1

REPORT INFORMATION
  Report Type: Spontaneous
  Country: CH (occurrence: CH)
  Receive Date: 20250103
  Receipt Date: 20250103
  Transmission Date: 20250409
  Serious: No
  Sender: ALKEM
  Company Number: CH-ALKEM LABORATORIES LIMITED-CH-ALKEM-2024-06375

PATIENT

DRUGS (4)
  1. TACROLIMUS [Interacting]
     Active Substance: TACROLIMUS
     Indication: Immunosuppressant drug therapy
     Route: 065
  2. TACROLIMUS [Interacting]
     Active Substance: TACROLIMUS
     Route: 065
  3. DARUNAVIR\RITONAVIR [Interacting]
     Active Substance: DARUNAVIR\RITONAVIR
     Indication: Product used for unknown indication
     Route: 065
  4. DARUNAVIR\RITONAVIR [Interacting]
     Active Substance: DARUNAVIR\RITONAVIR
     Route: 065

REACTIONS (2)
  - Drug level increased [Unknown]
  - Drug interaction [Unknown]
